FAERS Safety Report 5041248-5 (Version None)
Quarter: 2006Q2

REPORT INFORMATION
  Report Type: 
  Country: None (occurrence: None)
  Receive Date: 20060626
  Receipt Date: 20060612
  Transmission Date: 20061013
  Serious: Yes (Death, Hospitalization)
  Sender: FDA-Public Use
  Company Number: 2006060043

PATIENT
  Age: 42 Year
  Sex: Female

DRUGS (13)
  1. SOMA [Suspect]
     Indication: ILL-DEFINED DISORDER
  2. CODEINE (CODEINE) [Suspect]
     Indication: ILL-DEFINED DISORDER
  3. DIAZEPAM [Suspect]
  4. MEPROBAMATE [Suspect]
  5. MORPHINE [Concomitant]
  6. ACETAMINOPHEN [Concomitant]
  7. CAFFEINE [Concomitant]
  8. DIPHENHYDRAMINE HCL [Concomitant]
  9. DOXEPIN [Concomitant]
  10. NICOTINE [Concomitant]
  11. NORCHLORCYCLIZINE [Concomitant]
  12. PROPOXYPHENE (DEXTROPROPOXYPHENE) [Concomitant]
  13. DOXYLAMINE [Concomitant]

REACTIONS (3)
  - COMPLETED SUICIDE [None]
  - DRUG TOXICITY [None]
  - MUSCLE RIGIDITY [None]
